FAERS Safety Report 9773050 (Version 1)
Quarter: 2013Q4

REPORT INFORMATION
  Report Type: Spontaneous
  Country: US (occurrence: US)
  Receive Date: 20131219
  Receipt Date: 20131219
  Transmission Date: 20140711
  Serious: No
  Sender: FDA-Public Use
  Company Number: US-GILEAD-2013-0090250

PATIENT
  Sex: Male

DRUGS (2)
  1. LETAIRIS [Suspect]
     Indication: PRODUCT USED FOR UNKNOWN INDICATION
     Dosage: 10 MG, QD
     Route: 048
     Dates: start: 20120629
  2. REMODULIN [Concomitant]

REACTIONS (6)
  - Device dislocation [Unknown]
  - Catheter site pain [Unknown]
  - Catheter site erythema [Unknown]
  - Diarrhoea [Unknown]
  - Headache [Unknown]
  - Dizziness [Unknown]
